FAERS Safety Report 18603540 (Version 1)
Quarter: 2020Q4

REPORT INFORMATION
  Report Type: Spontaneous
  Country: US (occurrence: US)
  Receive Date: 20201119
  Receipt Date: 20201119
  Transmission Date: 20210114
  Serious: No
  Sender: FDA-Public Use
  Company Number: None

PATIENT
  Age: 7 Decade
  Sex: Male

DRUGS (3)
  1. LEVETIRACETAM. [Suspect]
     Active Substance: LEVETIRACETAM
     Indication: COVID-19
     Dates: start: 2020
  2. HYDROXYCHLOROQUINE [Suspect]
     Active Substance: HYDROXYCHLOROQUINE
  3. AMOXICILLIN-CLAVULANATE [Suspect]
     Active Substance: AMOXICILLIN\CLAVULANIC ACID

REACTIONS (4)
  - Loss of consciousness [None]
  - Product use in unapproved indication [None]
  - Gaze palsy [None]
  - Tongue biting [None]
